FAERS Safety Report 25970942 (Version 1)
Quarter: 2025Q4

REPORT INFORMATION
  Report Type: Spontaneous
  Country: GB (occurrence: GB)
  Receive Date: 20251028
  Receipt Date: 20251028
  Transmission Date: 20260117
  Serious: Yes (Other)
  Sender: ARTHUR GROUP LLC
  Company Number: GB-ARTHUR-2025AGLIT00014

PATIENT
  Age: 5 Month

DRUGS (5)
  1. MELPHALAN [Suspect]
     Active Substance: MELPHALAN
     Indication: Retinoblastoma
     Route: 013
  2. MELPHALAN [Suspect]
     Active Substance: MELPHALAN
     Indication: Retinoblastoma
     Route: 013
  3. MELPHALAN [Suspect]
     Active Substance: MELPHALAN
     Indication: Drug therapy
  4. TOPOTECAN [Suspect]
     Active Substance: TOPOTECAN HYDROCHLORIDE
     Indication: Retinoblastoma
     Route: 013
  5. TOPOTECAN [Suspect]
     Active Substance: TOPOTECAN HYDROCHLORIDE
     Route: 013

REACTIONS (4)
  - IIIrd nerve paralysis [Recovered/Resolved]
  - VIth nerve paralysis [Recovered/Resolved]
  - Product use in unapproved indication [Unknown]
  - Product use issue [Unknown]
